FAERS Safety Report 6609579-2 (Version None)
Quarter: 2010Q1

REPORT INFORMATION
  Report Type: 
  Country: None (occurrence: None)
  Receive Date: 20100212
  Receipt Date: 20091123
  Transmission Date: 20100710
  Serious: No
  Sender: FDA-Public Use
  Company Number: 1000010055

PATIENT
  Age: 32 Year
  Sex: Female

DRUGS (8)
  1. SAVELLA [Suspect]
     Indication: PAIN
     Dosage: 12.5 MG (12.5 MG, 1 IN 1 D), ORAL; SEE IMAGE
     Route: 048
     Dates: start: 20090904, end: 20090904
  2. SAVELLA [Suspect]
     Indication: PAIN
     Dosage: 12.5 MG (12.5 MG, 1 IN 1 D), ORAL; SEE IMAGE
     Route: 048
     Dates: start: 20090905, end: 20090905
  3. SAVELLA [Suspect]
     Indication: PAIN
     Dosage: 12.5 MG (12.5 MG, 1 IN 1 D), ORAL; SEE IMAGE
     Route: 048
     Dates: start: 20090907, end: 20090910
  4. SAVELLA [Suspect]
     Indication: PAIN
     Dosage: 100 MG (50 MG, 2 IN 1 D), ORAL
     Route: 048
     Dates: start: 20090911, end: 20090918
  5. DILAUDID [Concomitant]
  6. FLEXERIL [Concomitant]
  7. TOPROL-XL [Concomitant]
  8. KLONOPIN [Concomitant]

REACTIONS (2)
  - NAUSEA [None]
  - VOMITING PROJECTILE [None]
